FAERS Safety Report 17327438 (Version 1)
Quarter: 2020Q1

REPORT INFORMATION
  Report Type: Spontaneous
  Country: AU (occurrence: AU)
  Receive Date: 20200127
  Receipt Date: 20200127
  Transmission Date: 20200409
  Serious: Yes (Hospitalization, Other)
  Sender: FDA-Public Use
  Company Number: AU-JNJFOC-20200124176

PATIENT
  Age: 51 Year
  Sex: Male

DRUGS (3)
  1. INVEGA SUSTENNA [Suspect]
     Active Substance: PALIPERIDONE PALMITATE
     Indication: SCHIZOPHRENIA
     Route: 030
  2. INVEGA SUSTENNA [Suspect]
     Active Substance: PALIPERIDONE PALMITATE
     Indication: SUBSTANCE-INDUCED PSYCHOTIC DISORDER
     Route: 030
  3. OLANZAPINE. [Concomitant]
     Active Substance: OLANZAPINE
     Dosage: 10-20 MG
     Route: 065

REACTIONS (6)
  - Product administered at inappropriate site [Unknown]
  - Hospitalisation [Unknown]
  - Schizophrenia [Unknown]
  - Injection site pain [Unknown]
  - Off label use [Unknown]
  - Drug abuser [Unknown]
